FAERS Safety Report 6120961-2 (Version None)
Quarter: 2009Q1

REPORT INFORMATION
  Report Type: 
  Country: None (occurrence: None)
  Receive Date: 20090313
  Receipt Date: 20090304
  Transmission Date: 20090719
  Serious: Yes (Hospitalization)
  Sender: FDA-Public Use
  Company Number: PAR_02872_2009

PATIENT
  Sex: Male
  Weight: 78 kg

DRUGS (1)
  1. MESALAMINE [Suspect]
     Indication: COLITIS ULCERATIVE
     Dosage: (2 DF QD ORAL)
     Route: 048
     Dates: start: 20090129, end: 20090304

REACTIONS (2)
  - ANAEMIA [None]
  - DISEASE PROGRESSION [None]
